FAERS Safety Report 15283872 (Version 1)
Quarter: 2018Q3

REPORT INFORMATION
  Report Type: Spontaneous
  Country: US (occurrence: US)
  Receive Date: 20180801
  Receipt Date: 20180801
  Transmission Date: 20181010
  Serious: Yes (Other)
  Sender: FDA-Public Use
  Company Number: None

PATIENT
  Age: 72 Year
  Sex: Female
  Weight: 68.04 kg

DRUGS (23)
  1. TRAZODONE [Concomitant]
     Active Substance: TRAZODONE HYDROCHLORIDE
  2. HYDROMORPHONE [Concomitant]
     Active Substance: HYDROMORPHONE
  3. VITAMIN D3 [Concomitant]
     Active Substance: CHOLECALCIFEROL
  4. VITAMIN K2 [Concomitant]
     Active Substance: MENAQUINONE 6
  5. VITAMIN B [Concomitant]
     Active Substance: VITAMIN B
  6. TURMERIC [Concomitant]
     Active Substance: HERBALS\TURMERIC
  7. MAGNESIUM [Concomitant]
     Active Substance: MAGNESIUM
  8. FISH OIL [Concomitant]
     Active Substance: FISH OIL
  9. CURCAMIN [Concomitant]
  10. HYDROXYZINE [Concomitant]
     Active Substance: HYDROXYZINE HYDROCHLORIDE
  11. CALCIUM [Concomitant]
     Active Substance: CALCIUM
  12. SLIPPERY ELM [Concomitant]
     Active Substance: ELM
  13. ALENDRONATE SODIUM 70MG [Suspect]
     Active Substance: ALENDRONATE SODIUM
     Indication: OSTEOPENIA
     Dosage: ?          QUANTITY:1 DF DOSAGE FORM;?
     Route: 048
     Dates: start: 20180630, end: 2018
  14. LEVOTHYROXINE. [Concomitant]
     Active Substance: LEVOTHYROXINE
  15. PANTOPRAZOLE [Concomitant]
     Active Substance: PANTOPRAZOLE
  16. TRINTELLIX [Concomitant]
     Active Substance: VORTIOXETINE HYDROBROMIDE
  17. HORIZANT [Concomitant]
     Active Substance: GABAPENTIN ENACARBIL
  18. VITAMIN C [Concomitant]
     Active Substance: ASCORBIC ACID
  19. OSTEO BI?FLEX [Concomitant]
     Active Substance: CHONDROITIN SULFATE A\GLUCOSAMINE
  20. GARLIC. [Concomitant]
     Active Substance: GARLIC
  21. MUCINEX [Concomitant]
     Active Substance: GUAIFENESIN
  22. METHYL FOLATE [Concomitant]
  23. LOVASTATIN. [Concomitant]
     Active Substance: LOVASTATIN

REACTIONS (2)
  - Condition aggravated [None]
  - Psoriatic arthropathy [None]

NARRATIVE: CASE EVENT DATE: 20180630
